FAERS Safety Report 20617262 (Version 1)
Quarter: 2022Q1

REPORT INFORMATION
  Report Type: Spontaneous
  Country: US (occurrence: None)
  Receive Date: 20220320
  Receipt Date: 20220320
  Transmission Date: 20220423
  Serious: Yes (Other)
  Sender: FDA-Public Use
  Company Number: None

PATIENT
  Age: 28 Year
  Sex: Female
  Weight: 53.1 kg

DRUGS (2)
  1. NORTRIPTYLINE [Suspect]
     Active Substance: NORTRIPTYLINE
     Indication: Brain injury
     Dosage: OTHER QUANTITY : 1 CAPSULE(S);?FREQUENCY : AT BEDTIME;?
     Route: 048
     Dates: start: 20220214
  2. NORTRIPTYLINE [Suspect]
     Active Substance: NORTRIPTYLINE
     Indication: Headache

REACTIONS (12)
  - Rectal haemorrhage [None]
  - Contusion [None]
  - Tinnitus [None]
  - Weight decreased [None]
  - Sunburn [None]
  - Photophobia [None]
  - Nausea [None]
  - Insomnia [None]
  - Constipation [None]
  - Thirst [None]
  - Dry skin [None]
  - Fatigue [None]

NARRATIVE: CASE EVENT DATE: 20220317
